FAERS Safety Report 7998681 (Version 5)
Quarter: 2014Q2

REPORT INFORMATION
  Report Type: Report from Study
  Country: KR (occurrence: KR)
  Receive Date: 20110620
  Receipt Date: 20140611
  Transmission Date: 20141212
  Serious: Yes (Hospitalization, Other)
  Sender: FDA-Public Use
  Company Number: PHHO2011KR09842

PATIENT
  Age: 57 Year
  Sex: Female
  Weight: 66.8 kg

DRUGS (8)
  1. CGP 57148B [Suspect]
     Indication: PULMONARY ARTERIAL HYPERTENSION
     Dosage: 400 MG, QD
     Route: 048
     Dates: start: 20100623, end: 20101208
  2. CGP 57148B [Suspect]
     Dosage: 200 MG, QD
     Route: 048
     Dates: start: 20101209, end: 20110609
  3. BERAPROST [Concomitant]
     Indication: PULMONARY ARTERIAL HYPERTENSION
     Dosage: 40 UG, TID
     Route: 048
     Dates: start: 20090928
  4. SILDENAFIL [Concomitant]
     Indication: PULMONARY ARTERIAL HYPERTENSION
     Dosage: 25 MG, TID
     Route: 048
     Dates: start: 20070604
  5. FUROSEMIDE [Concomitant]
     Indication: PULMONARY ARTERIAL HYPERTENSION
     Dosage: 40 MG, QD
     Route: 048
     Dates: start: 20100915
  6. SPIRONOLACTONE [Concomitant]
     Indication: PULMONARY ARTERIAL HYPERTENSION
     Dosage: 25 MG, QD
     Route: 048
     Dates: start: 20070801
  7. WARFARIN [Concomitant]
     Indication: PULMONARY ARTERIAL HYPERTENSION
     Dosage: 4 MG, QD
     Route: 048
     Dates: start: 20110303, end: 20110607
  8. WARFARIN [Concomitant]
     Dosage: UNK
     Dates: start: 20110610

REACTIONS (2)
  - Pulmonary embolism [Recovering/Resolving]
  - Syncope [Recovered/Resolved]
